FAERS Safety Report 21091054 (Version 3)
Quarter: 2023Q1

REPORT INFORMATION
  Report Type: Spontaneous
  Country: US (occurrence: US)
  Receive Date: 20220716
  Receipt Date: 20230321
  Transmission Date: 20230418
  Serious: No
  Sender: FDA-Public Use
  Company Number: US-LUPIN PHARMACEUTICALS INC.-2022-09375

PATIENT

DRUGS (1)
  1. ALBUTEROL SULFATE [Suspect]
     Active Substance: ALBUTEROL SULFATE
     Indication: Product used for unknown indication
     Dosage: UNK UNK, PRN, 2 PUFFS EVERY 6 HOURS AS NEEDED
     Dates: start: 20220508

REACTIONS (4)
  - Wrong technique in device usage process [Unknown]
  - Device information output issue [Unknown]
  - Wrong technique in product usage process [Unknown]
  - No adverse event [Unknown]
